FAERS Safety Report 25026388 (Version 3)
Quarter: 2025Q2

REPORT INFORMATION
  Report Type: Spontaneous
  Country: US (occurrence: US)
  Receive Date: 20250301
  Receipt Date: 20250522
  Transmission Date: 20250717
  Serious: No
  Sender: ALEXION PHARMACEUTICALS
  Company Number: US-AstraZeneca-CH-00817000AP

PATIENT

DRUGS (1)
  1. BYDUREON BCISE [Suspect]
     Active Substance: EXENATIDE
     Dosage: 2 MILLIGRAM, QW
     Route: 065

REACTIONS (13)
  - Incorrect dose administered [Unknown]
  - Product dose omission issue [Unknown]
  - Overdose [Unknown]
  - Device malfunction [Unknown]
  - Device delivery system issue [Unknown]
  - Device issue [Unknown]
  - Needle issue [Unknown]
  - Product dose omission issue [Unknown]
  - Nail injury [Unknown]
  - Visual impairment [Unknown]
  - Pain [Unknown]
  - Injection site haemorrhage [Unknown]
  - Device leakage [Unknown]
